FAERS Safety Report 18342872 (Version 1)
Quarter: 2020Q4

REPORT INFORMATION
  Report Type: Spontaneous
  Country: US (occurrence: US)
  Receive Date: 20201002
  Receipt Date: 20201002
  Transmission Date: 20210113
  Serious: No
  Sender: FDA-Public Use
  Company Number: None

PATIENT
  Age: 59 Year
  Sex: Female
  Weight: 135 kg

DRUGS (13)
  1. CONVALESCENT PLASMA [Concomitant]
     Active Substance: HUMAN PLASMA
     Dates: start: 20200928, end: 20200928
  2. PROPOFOL INJECTABLE [Concomitant]
     Dates: start: 20200923, end: 20200925
  3. ENOXAPARIN INJECTABLE [Concomitant]
     Dates: start: 20200923
  4. AZITHROMYCIN 250MG TABLETS [Concomitant]
     Active Substance: AZITHROMYCIN
     Dates: start: 20200926, end: 20200928
  5. CEFTRIAXONE 1GM INJECTABLE [Concomitant]
     Dates: start: 20200923, end: 20200928
  6. FUROSEMIDE INJECTABLE [Concomitant]
     Dates: start: 20200924, end: 20200925
  7. ACETAMINOPHEN 325MG TABLETS [Concomitant]
     Dates: start: 20200926
  8. DEXAMETHASONE INJECTABLE [Concomitant]
     Dates: start: 20200924
  9. FAMOTIDINE INJECTABLE [Concomitant]
     Dates: start: 20200923, end: 20200926
  10. REMDESIVIR. [Suspect]
     Active Substance: REMDESIVIR
     Route: 042
     Dates: start: 20200924, end: 20200928
  11. AZITHROMYCIN 500MG INJECTABLE [Concomitant]
     Dates: start: 20200923, end: 20200925
  12. DEXMEDETOMIDINE INJECTABLE [Concomitant]
     Dates: start: 20200923, end: 20200925
  13. REMDESIVIR. [Suspect]
     Active Substance: REMDESIVIR
     Dates: start: 20200924, end: 20200928

REACTIONS (2)
  - Hepatic enzyme increased [None]
  - Alanine aminotransferase increased [None]

NARRATIVE: CASE EVENT DATE: 20200929
